FAERS Safety Report 17468796 (Version 2)
Quarter: 2020Q1

REPORT INFORMATION
  Report Type: Spontaneous
  Country: JP (occurrence: JP)
  Receive Date: 20200227
  Receipt Date: 20200310
  Transmission Date: 20200409
  Serious: Yes (Hospitalization, Other)
  Sender: FDA-Public Use
  Company Number: JP-009507513-2002JPN002049J

PATIENT
  Age: 75 Year
  Sex: Male
  Weight: 171 kg

DRUGS (10)
  1. WARFARIN [Concomitant]
     Active Substance: WARFARIN
     Indication: ATRIAL FIBRILLATION
     Dosage: 2 MILLIGRAM, DAILY
     Route: 048
     Dates: start: 20000415
  2. DILTIAZEM HYDROCHLORIDE. [Concomitant]
     Active Substance: DILTIAZEM HYDROCHLORIDE
     Indication: ATRIAL FIBRILLATION
     Dosage: 100 MILLIGRAM, DAILY
     Route: 048
     Dates: start: 20001011
  3. METLIGINE [Concomitant]
     Active Substance: MIDODRINE HYDROCHLORIDE
     Indication: ORTHOSTATIC HYPOTENSION
     Dosage: 2 MILLIGRAM, DAILY
     Route: 048
     Dates: start: 20060215
  4. TEPRENONE [Concomitant]
     Active Substance: TEPRENONE
     Indication: CHRONIC GASTRITIS
     Dosage: 50 MILLIGRAM, 3 TIMES PER DAY
     Route: 048
     Dates: start: 20100908
  5. MAGNESIUM OXIDE. [Concomitant]
     Active Substance: MAGNESIUM OXIDE
     Indication: CONSTIPATION
     Dosage: 0.5 GRAM, TWICE A DAY
     Route: 048
     Dates: start: 20001220
  6. LANSOPRAZOLE OD [Concomitant]
     Active Substance: LANSOPRAZOLE
     Indication: GASTROOESOPHAGEAL REFLUX DISEASE
     Dosage: 15 MILLIGRAM, DAILY
     Route: 048
     Dates: start: 20050713
  7. KEYTRUDA [Suspect]
     Active Substance: PEMBROLIZUMAB
     Indication: TRANSITIONAL CELL CARCINOMA
     Dosage: 200 MILLIGRAM, EVERY 3 WEEKS
     Route: 041
     Dates: start: 20200115, end: 20200205
  8. HALFDIGOXIN [Concomitant]
     Active Substance: DIGOXIN
     Indication: CARDIAC FAILURE CHRONIC
     Dosage: 0.125 MILLIGRAM, DAILY
     Route: 048
     Dates: start: 20000415
  9. BROTIZOLAM OD [Concomitant]
     Indication: INSOMNIA
     Dosage: 0.25 MILLIGRAM, DAILY
     Route: 048
     Dates: start: 20000415
  10. WARFARIN [Concomitant]
     Active Substance: WARFARIN
     Dosage: 0.5 MILLIGRAM, DAILY
     Route: 048
     Dates: start: 20000415

REACTIONS (3)
  - Meningitis [Recovered/Resolved]
  - Pyrexia [Recovered/Resolved]
  - Headache [Recovered/Resolved]

NARRATIVE: CASE EVENT DATE: 20200202
